FAERS Safety Report 23470250 (Version 1)
Quarter: 2024Q1

REPORT INFORMATION
  Report Type: Spontaneous
  Country: RU (occurrence: RU)
  Receive Date: 20240202
  Receipt Date: 20240202
  Transmission Date: 20240410
  Serious: Yes (Other)
  Sender: FDA-Public Use
  Company Number: RU-BAYER-2024A015251

PATIENT
  Age: 68 Year
  Sex: Female
  Weight: 85 kg

DRUGS (9)
  1. XARELTO [Suspect]
     Active Substance: RIVAROXABAN
     Indication: Anticoagulant therapy
     Dosage: UNK
     Route: 048
     Dates: start: 202304
  2. IOPROMIDE [Suspect]
     Active Substance: IOPROMIDE
     Indication: Product used for unknown indication
     Dosage: SOLUTION FOR INJECTION 370 MG/ML  100 ML
     Dates: start: 20240117
  3. ATORVASTATIN [Concomitant]
     Active Substance: ATORVASTATIN
     Indication: Dyslipidaemia
     Dosage: 20 MG, UNK
     Route: 048
     Dates: start: 202311, end: 20240112
  4. ATORVASTATIN [Concomitant]
     Active Substance: ATORVASTATIN
     Indication: Dyslipidaemia
     Dosage: 40 MG
     Route: 048
     Dates: start: 20240112
  5. METOPROLOL [Concomitant]
     Active Substance: METOPROLOL
     Indication: Myocardial ischaemia
     Dosage: 125 MG, UNK
     Route: 048
     Dates: start: 202306
  6. SPIRONOLACTONE [Concomitant]
     Active Substance: SPIRONOLACTONE
     Indication: Cardiac failure chronic
     Dosage: 50 MG, UNK
     Route: 048
     Dates: start: 202306
  7. TORSEMIDE [Concomitant]
     Active Substance: TORSEMIDE
     Indication: Cardiac failure chronic
     Dosage: 20 MG, UNK
     Route: 048
     Dates: start: 202306
  8. PERINDOPRIL [Concomitant]
     Active Substance: PERINDOPRIL
     Indication: Cardiac failure chronic
     Dosage: UNK
     Route: 048
     Dates: start: 20240111
  9. DIGOXIN [Concomitant]
     Active Substance: DIGOXIN
     Indication: Atrial fibrillation
     Dosage: 125 MG, UNK
     Route: 048
     Dates: start: 202306

REACTIONS (6)
  - Blood pressure decreased [Recovered/Resolved]
  - Hyperaemia [Recovering/Resolving]
  - Feeling hot [Recovered/Resolved]
  - Erythema [Recovered/Resolved]
  - Dizziness [Recovered/Resolved]
  - Asthenia [Recovered/Resolved]

NARRATIVE: CASE EVENT DATE: 20240117
